FAERS Safety Report 25647369 (Version 2)
Quarter: 2025Q4

REPORT INFORMATION
  Report Type: Spontaneous
  Country: US (occurrence: US)
  Receive Date: 20250806
  Receipt Date: 20251211
  Transmission Date: 20260118
  Serious: Yes (Hospitalization, Other)
  Sender: ELI LILLY AND COMPANY
  Company Number: US-ELI_LILLY_AND_COMPANY-US202507026345

PATIENT
  Age: 57 Year
  Sex: Female
  Weight: 72.109 kg

DRUGS (26)
  1. TRULICITY [Suspect]
     Active Substance: DULAGLUTIDE
     Indication: Type 2 diabetes mellitus
     Dosage: 1.5 MG, WEEKLY (1/W)
     Route: 065
     Dates: start: 20201226, end: 20221224
  2. TRULICITY [Suspect]
     Active Substance: DULAGLUTIDE
     Dosage: 3 MG, WEEKLY (1/W)
     Route: 065
     Dates: start: 20221231, end: 20230204
  3. TRULICITY [Suspect]
     Active Substance: DULAGLUTIDE
     Dosage: 4.5 MG, WEEKLY (1/W)
     Route: 065
     Dates: start: 20240427, end: 20240518
  4. MOUNJARO [Suspect]
     Active Substance: TIRZEPATIDE
     Indication: Type 2 diabetes mellitus
     Dosage: 5 MG, WEEKLY (1/W)
     Route: 065
     Dates: start: 20230211, end: 20240108
  5. MOUNJARO [Suspect]
     Active Substance: TIRZEPATIDE
     Indication: Type 2 diabetes mellitus
     Dosage: 5 MG, WEEKLY (1/W)
     Route: 065
     Dates: start: 20230211, end: 20240108
  6. MOUNJARO [Suspect]
     Active Substance: TIRZEPATIDE
     Dosage: 5 MG, WEEKLY (1/W)
     Route: 065
     Dates: start: 20240525, end: 20250222
  7. MOUNJARO [Suspect]
     Active Substance: TIRZEPATIDE
     Dosage: 5 MG, WEEKLY (1/W)
     Route: 065
     Dates: start: 20240525, end: 20250222
  8. MOUNJARO [Suspect]
     Active Substance: TIRZEPATIDE
     Indication: Type 2 diabetes mellitus
     Dosage: 7.5 MG, UNKNOWN
     Route: 065
     Dates: start: 20240114, end: 20240420
  9. MOUNJARO [Suspect]
     Active Substance: TIRZEPATIDE
     Indication: Type 2 diabetes mellitus
     Dosage: 7.5 MG, UNKNOWN
     Route: 065
     Dates: start: 20240114, end: 20240420
  10. GLIPIZIDE [Concomitant]
     Active Substance: GLIPIZIDE
     Indication: Diabetes mellitus
     Dosage: UNK UNK, UNKNOWN
     Route: 065
     Dates: start: 20211214, end: 20220314
  11. METFORMIN [Concomitant]
     Active Substance: METFORMIN HYDROCHLORIDE
     Indication: Diabetes mellitus
     Dosage: UNK
     Route: 065
     Dates: start: 20000501, end: 20201225
  12. NOVOLOG [Concomitant]
     Active Substance: INSULIN ASPART
     Indication: Diabetes mellitus
     Dosage: UNK UNK, UNKNOWN
     Route: 065
     Dates: start: 20250414, end: 20250601
  13. REPAGLINIDE [Concomitant]
     Active Substance: REPAGLINIDE
     Indication: Diabetes mellitus
     Dosage: UNK
     Route: 065
     Dates: start: 20250320, end: 20250420
  14. TRESIBA [Concomitant]
     Active Substance: INSULIN DEGLUDEC
     Indication: Diabetes mellitus
     Dosage: UNK UNK, UNKNOWN
     Route: 065
     Dates: start: 20230808
  15. BETAMETHASONE CLOTRIMAZOLE [Concomitant]
     Active Substance: BETAMETHASONE DIPROPIONATE\CLOTRIMAZOLE
     Indication: Eye disorder
     Dosage: UNK, UNKNOWN
     Route: 065
     Dates: start: 20230619
  16. DICLOFENAC [Concomitant]
     Active Substance: DICLOFENAC
     Indication: Infection prophylaxis
     Dosage: UNK, UNKNOWN
     Route: 065
     Dates: start: 20241009, end: 20241030
  17. KETOROLAC [Concomitant]
     Active Substance: KETOROLAC TROMETHAMINE
     Indication: Infection prophylaxis
     Dosage: UNK UNK, UNKNOWN
     Route: 065
     Dates: start: 20240823
  18. LATANOPROST [Concomitant]
     Active Substance: LATANOPROST
     Indication: Infection prophylaxis
     Dosage: UNK
     Route: 065
     Dates: start: 20211023, end: 20211117
  19. LEUCOVORIN CALCIUM [Concomitant]
     Active Substance: LEUCOVORIN CALCIUM
     Indication: Supplementation therapy
     Dosage: UNK UNK, UNKNOWN
     Dates: start: 20250613
  20. NYSTATIN\TRIAMCINOLONE [Concomitant]
     Active Substance: NYSTATIN\TRIAMCINOLONE
     Indication: Eye infection
     Dosage: UNK
     Route: 065
     Dates: start: 20240725
  21. OFLOXACIN [Concomitant]
     Active Substance: OFLOXACIN
     Indication: Infection prophylaxis
     Dosage: UNK
     Route: 065
     Dates: start: 20211102
  22. POLYMYXIN;TRIMETHOPRIM [Concomitant]
     Indication: Eye infection
     Dosage: UNK, UNKNOWN
     Route: 065
     Dates: start: 20211111, end: 20230816
  23. TRAVOPROST [Concomitant]
     Active Substance: TRAVOPROST
     Indication: Infection prophylaxis
     Dosage: UNK UNK, UNKNOWN
     Route: 065
  24. COGENT DB PLUS [Concomitant]
     Indication: Cardiac disorder
     Dosage: UNK
     Route: 065
     Dates: start: 20140101
  25. SEA MOSS [Concomitant]
     Indication: Supplementation therapy
     Dosage: UNK
     Route: 065
     Dates: start: 20140101
  26. SOURSOP GRAVIOLA GUMMIES [Concomitant]
     Indication: Supplementation therapy
     Dosage: UNK UNK, UNKNOWN
     Route: 065
     Dates: start: 20140101

REACTIONS (6)
  - Impaired gastric emptying [Recovered/Resolved]
  - Nausea [Recovered/Resolved]
  - Vomiting [Recovered/Resolved]
  - Abdominal distension [Unknown]
  - Diarrhoea [Unknown]
  - Abdominal pain [Unknown]

NARRATIVE: CASE EVENT DATE: 20201227
